FAERS Safety Report 8372038-3 (Version None)
Quarter: 2012Q2

REPORT INFORMATION
  Report Type: 
  Country: None (occurrence: None)
  Receive Date: 20120520
  Receipt Date: 20120517
  Transmission Date: 20120825
  Serious: Yes (Hospitalization)
  Sender: FDA-Public Use
  Company Number: CA-ABBOTT-12P-028-0929651-00

PATIENT
  Sex: Female
  Weight: 61.29 kg

DRUGS (2)
  1. HUMIRA [Suspect]
     Route: 058
  2. HUMIRA [Suspect]
     Indication: RHEUMATOID ARTHRITIS
     Dosage: MISSED A DOSE IN FEB 2012
     Route: 058
     Dates: start: 20100326

REACTIONS (2)
  - GASTROINTESTINAL INFECTION [None]
  - DIARRHOEA HAEMORRHAGIC [None]
